FAERS Safety Report 15986146 (Version 1)
Quarter: 2019Q1

REPORT INFORMATION
  Report Type: Spontaneous
  Country: US (occurrence: US)
  Receive Date: 20190220
  Receipt Date: 20190220
  Transmission Date: 20190418
  Serious: Yes (Other)
  Sender: FDA-Public Use
  Company Number: US-BAUSCH-BL-2019-004828

PATIENT
  Age: 87 Year
  Sex: Male
  Weight: 66.28 kg

DRUGS (4)
  1. PRESERVISION AREDS 2 FORMULA SOFT GELS [Suspect]
     Active Substance: MINERALS\VITAMINS
     Indication: MACULAR DEGENERATION
     Route: 048
     Dates: start: 201902, end: 20190210
  2. COMBIGAN [Concomitant]
     Active Substance: BRIMONIDINE TARTRATE\TIMOLOL MALEATE
     Indication: PRODUCT USED FOR UNKNOWN INDICATION
     Route: 047
  3. LOSARTAN. [Concomitant]
     Active Substance: LOSARTAN
     Indication: PRODUCT USED FOR UNKNOWN INDICATION
     Route: 048
  4. LATANOPROST. [Suspect]
     Active Substance: LATANOPROST
     Indication: GLAUCOMA
     Dosage: TWO TO FOUR YEARS AGO, ONE DROP IN EACH EYE AT BEDTIME
     Route: 047

REACTIONS (5)
  - Foreign body in respiratory tract [Recovered/Resolved]
  - Product use complaint [Recovered/Resolved]
  - Product physical issue [Recovered/Resolved]
  - Product residue present [Unknown]
  - Cataract [Unknown]

NARRATIVE: CASE EVENT DATE: 201902
